FAERS Safety Report 7436409-1 (Version None)
Quarter: 2011Q2

REPORT INFORMATION
  Report Type: 
  Country: None (occurrence: None)
  Receive Date: 20110426
  Receipt Date: 20110413
  Transmission Date: 20111010
  Serious: No
  Sender: FDA-Public Use
  Company Number: US-BIOGENIDEC-2011BI014415

PATIENT
  Sex: Female

DRUGS (2)
  1. AMPYRA [Concomitant]
     Indication: PRODUCT USED FOR UNKNOWN INDICATION
     Dates: start: 20100901, end: 20110101
  2. TYSABRI [Suspect]
     Indication: MULTIPLE SCLEROSIS
     Route: 042
     Dates: start: 20070517

REACTIONS (7)
  - HYPOAESTHESIA [None]
  - GAIT DISTURBANCE [None]
  - DYSSTASIA [None]
  - PAIN IN EXTREMITY [None]
  - FATIGUE [None]
  - MUSCLE SPASMS [None]
  - COELIAC DISEASE [None]
